FAERS Safety Report 6912829-6 (Version None)
Quarter: 2010Q3

REPORT INFORMATION
  Report Type: 
  Country: None (occurrence: None)
  Receive Date: 20100806
  Receipt Date: 20090124
  Transmission Date: 20110219
  Serious: No
  Sender: FDA-Public Use
  Company Number: US-PFIZER INC-2008155637

PATIENT
  Sex: Female
  Weight: 12.25 kg

DRUGS (6)
  1. VFEND [Suspect]
     Indication: ASPERGILLOSIS
     Dosage: 1.3 ML, 2X/DAY
     Dates: start: 20080901
  2. VINCRISTINE [Concomitant]
     Dosage: UNK
  3. METHOTREXATE [Concomitant]
     Dosage: UNK
     Route: 037
  4. CYTOXAN [Concomitant]
     Dosage: UNK
  5. ASPARAGINASE [Concomitant]
     Dosage: UNK
  6. DRUG, UNSPECIFIED [Concomitant]
     Dosage: UNK
     Route: 042

REACTIONS (1)
  - SKIN DISORDER [None]
